FAERS Safety Report 5945846-3 (Version None)
Quarter: 2008Q4

REPORT INFORMATION
  Report Type: 
  Country: None (occurrence: None)
  Receive Date: 20081106
  Receipt Date: 20081027
  Transmission Date: 20090506
  Serious: Yes (Hospitalization)
  Sender: FDA-Public Use
  Company Number: 2008BI026468

PATIENT
  Age: 50 Year
  Sex: Male

DRUGS (3)
  1. TYSABRI [Suspect]
     Indication: MULTIPLE SCLEROSIS
     Dosage: IV
     Route: 042
     Dates: start: 20070605
  2. CARBAMAZEPINE [Suspect]
     Dosage: 299 MG; TID; PO
     Route: 048
  3. LIDOCAINE [Suspect]

REACTIONS (3)
  - CARDIAC DISORDER [None]
  - PULMONARY EMBOLISM [None]
  - PULMONARY INFARCTION [None]
